FAERS Safety Report 6537404-7 (Version None)
Quarter: 2010Q1

REPORT INFORMATION
  Report Type: 
  Country: None (occurrence: None)
  Receive Date: 20100110
  Receipt Date: 20091229
  Transmission Date: 20100710
  Serious: Yes (Hospitalization)
  Sender: FDA-Public Use
  Company Number: 465462

PATIENT
  Age: 3 Year
  Sex: Female

DRUGS (9)
  1. CYTARABINE [Suspect]
     Indication: B PRECURSOR TYPE ACUTE LEUKAEMIA
     Dosage: 36 MG, INTRATHECAL
     Route: 037
  2. METHOTREXATE [Suspect]
     Indication: B PRECURSOR TYPE ACUTE LEUKAEMIA
     Dosage: 12 MG, INTRATHECAL
     Route: 037
  3. PREDNISOLONE [Concomitant]
  4. ELSPAR [Concomitant]
  5. VINCRISTINE [Concomitant]
  6. DAUNORUBICIN HCL [Concomitant]
  7. METHYLPREDNISOLONE [Concomitant]
  8. CEFTRIAXONE [Concomitant]
  9. FLUCONAZOLE [Concomitant]

REACTIONS (7)
  - ARACHNOIDITIS [None]
  - CONSTIPATION [None]
  - DERMATITIS DIAPER [None]
  - DRUG TOXICITY [None]
  - HYDRONEPHROSIS [None]
  - NEUROTOXICITY [None]
  - URINARY RETENTION [None]
